FAERS Safety Report 15008896 (Version 1)
Quarter: 2018Q2

REPORT INFORMATION
  Report Type: Report from Study
  Country: US (occurrence: US)
  Receive Date: 20180613
  Receipt Date: 20180613
  Transmission Date: 20180711
  Serious: Yes (Other)
  Sender: FDA-Public Use
  Company Number: US-ROCHE-2136974

PATIENT
  Sex: Female

DRUGS (1)
  1. VALGANCICLOVIR. [Suspect]
     Active Substance: VALGANCICLOVIR
     Indication: FATIGUE
     Dosage: 2 AM, 1 PM = 900 MG QAM, 450 MG QPM
     Route: 048

REACTIONS (4)
  - Bedridden [Unknown]
  - Intentional product use issue [Unknown]
  - Off label use [Unknown]
  - Ill-defined disorder [Unknown]
